FAERS Safety Report 19979751 (Version 1)
Quarter: 2021Q4

REPORT INFORMATION
  Report Type: Spontaneous
  Country: IN (occurrence: IN)
  Receive Date: 20211021
  Receipt Date: 20211021
  Transmission Date: 20220303
  Serious: Yes (Other)
  Sender: FDA-Public Use
  Company Number: IN-STRIDES ARCOLAB LIMITED-2021SP028838

PATIENT
  Age: 37 Year
  Sex: Female

DRUGS (3)
  1. ACETAZOLAMIDE [Suspect]
     Active Substance: ACETAZOLAMIDE
     Indication: Intraocular pressure increased
     Dosage: UNK
     Route: 065
  2. TOPIRAMATE [Suspect]
     Active Substance: TOPIRAMATE
     Indication: Migraine
     Dosage: UNK
     Route: 065
  3. PILOCARPINE [Concomitant]
     Active Substance: PILOCARPINE
     Indication: Intraocular pressure increased
     Dosage: UNK
     Route: 065

REACTIONS (6)
  - Cross sensitivity reaction [Recovered/Resolved]
  - Angle closure glaucoma [Recovered/Resolved]
  - Paradoxical drug reaction [Recovered/Resolved]
  - Condition aggravated [Recovered/Resolved]
  - Choroidal detachment [Recovered/Resolved]
  - Choroidal effusion [Recovered/Resolved]
